FAERS Safety Report 24333262 (Version 1)
Quarter: 2024Q3

REPORT INFORMATION
  Report Type: Spontaneous
  Country: US (occurrence: US)
  Receive Date: 20240918
  Receipt Date: 20240918
  Transmission Date: 20241017
  Serious: No
  Sender: PFIZER
  Company Number: US-PFIZER INC-PV202400121558

PATIENT
  Age: 50 Year
  Sex: Male

DRUGS (2)
  1. XELJANZ XR [Interacting]
     Active Substance: TOFACITINIB CITRATE
     Dosage: 11 MG, 1X/DAY
  2. PRIMIDONE [Interacting]
     Active Substance: PRIMIDONE

REACTIONS (1)
  - Drug interaction [Unknown]
